FAERS Safety Report 15225592 (Version 1)
Quarter: 2018Q3

REPORT INFORMATION
  Report Type: Spontaneous
  Country: US (occurrence: US)
  Receive Date: 20180801
  Receipt Date: 20180801
  Transmission Date: 20181010
  Serious: No
  Sender: FDA-Public Use
  Company Number: US-BAUSCH-BL-2018-019868

PATIENT
  Sex: Female
  Weight: 40.82 kg

DRUGS (1)
  1. ATIVAN [Suspect]
     Active Substance: LORAZEPAM
     Indication: NERVOUS SYSTEM DISORDER
     Route: 065

REACTIONS (1)
  - Drug ineffective [Unknown]
